FAERS Safety Report 17834967 (Version 3)
Quarter: 2021Q4

REPORT INFORMATION
  Report Type: Spontaneous
  Country: US (occurrence: None)
  Receive Date: 20200528
  Receipt Date: 20211123
  Transmission Date: 20220304
  Serious: Yes (Life-Threatening, Hospitalization, Other)
  Sender: FDA-Public Use
  Company Number: US-HIKMA PHARMACEUTICALS-US-H14001-20-02487

PATIENT
  Age: 16 Year
  Sex: Male
  Weight: 72.4 kg

DRUGS (6)
  1. LEUCOVORIN [Suspect]
     Active Substance: LEUCOVORIN
     Indication: Precursor B-lymphoblastic lymphoma
     Route: 048
     Dates: start: 20200311, end: 20200410
  2. MERCAPTOPURINE [Suspect]
     Active Substance: MERCAPTOPURINE
     Indication: Precursor B-lymphoblastic lymphoma
     Route: 048
     Dates: start: 20191223, end: 20200410
  3. METHOTREXATE [Suspect]
     Active Substance: METHOTREXATE
     Indication: Precursor B-lymphoblastic lymphoma
     Route: 042
     Dates: start: 20200309, end: 20200410
  4. METHOTREXATE [Suspect]
     Active Substance: METHOTREXATE
     Route: 042
     Dates: start: 20200309, end: 20200410
  5. RUXOLITINIB [Suspect]
     Active Substance: RUXOLITINIB
     Indication: Precursor B-lymphoblastic lymphoma
     Route: 048
     Dates: start: 20191223, end: 20200410
  6. VINCRISTINE [Suspect]
     Active Substance: VINCRISTINE
     Indication: Precursor B-lymphoblastic lymphoma
     Route: 042
     Dates: start: 20200106, end: 20200410

REACTIONS (2)
  - Toxic encephalopathy [Recovered/Resolved]
  - Cerebrovascular accident [Recovered/Resolved]
